FAERS Safety Report 12322178 (Version 1)
Quarter: 2016Q2

REPORT INFORMATION
  Report Type: Spontaneous
  Country: US (occurrence: None)
  Receive Date: 20160429
  Receipt Date: 20160429
  Transmission Date: 20160815
  Serious: Yes (Other)
  Sender: FDA-Public Use
  Company Number: None

PATIENT
  Age: 75 Year
  Sex: Male

DRUGS (1)
  1. REPATHA [Suspect]
     Active Substance: EVOLOCUMAB
     Dosage: 140MG Q2W SQ
     Route: 058
     Dates: start: 20151222, end: 20151222

REACTIONS (5)
  - Anaphylactic reaction [None]
  - Dysphagia [None]
  - Influenza like illness [None]
  - Pulmonary congestion [None]
  - Throat tightness [None]

NARRATIVE: CASE EVENT DATE: 20151222
